FAERS Safety Report 13885961 (Version 4)
Quarter: 2018Q3

REPORT INFORMATION
  Report Type: Other
  Country: FR (occurrence: FR)
  Receive Date: 20170821
  Receipt Date: 20180711
  Transmission Date: 20181010
  Serious: Yes (Hospitalization)
  Sender: FDA-Public Use
  Company Number: FR-ASTELLAS-2017US033005

PATIENT
  Age: 70 Year
  Sex: Male

DRUGS (6)
  1. LOPERAMIDE HYDROCHLORIDE. [Suspect]
     Active Substance: LOPERAMIDE HYDROCHLORIDE
     Indication: DIARRHOEA
     Route: 048
     Dates: start: 20170711, end: 20170725
  2. VESICARE [Suspect]
     Active Substance: SOLIFENACIN SUCCINATE
     Indication: URINARY INCONTINENCE
     Route: 048
     Dates: start: 201610, end: 20170725
  3. BACTRIM [Suspect]
     Active Substance: SULFAMETHOXAZOLE\TRIMETHOPRIM
     Indication: PROSTATITIS
     Dosage: UNK UNK, UNKNOWN FREQ.
     Route: 048
     Dates: start: 20170725, end: 20170728
  4. TIORFAN [Suspect]
     Active Substance: RACECADOTRIL
     Indication: DIARRHOEA
     Route: 048
     Dates: start: 20170725, end: 20170728
  5. NAUSICALM                          /00019501/ [Suspect]
     Active Substance: DIMENHYDRINATE
     Indication: NAUSEA
     Route: 048
     Dates: start: 20170711, end: 20170728
  6. DOMPERIDONE [Concomitant]
     Active Substance: DOMPERIDONE
     Indication: NAUSEA
     Route: 048
     Dates: start: 20170728, end: 20170728

REACTIONS (6)
  - Hepatocellular injury [Recovered/Resolved]
  - Decreased appetite [Unknown]
  - Nausea [Unknown]
  - Transaminases increased [Recovered/Resolved]
  - Asthenia [Unknown]
  - Gastrointestinal motility disorder [Unknown]

NARRATIVE: CASE EVENT DATE: 201707
